FAERS Safety Report 5293242-7 (Version None)
Quarter: 2007Q2

REPORT INFORMATION
  Report Type: 
  Country: None (occurrence: None)
  Receive Date: 20070411
  Receipt Date: 20070402
  Transmission Date: 20071010
  Serious: Yes (Hospitalization)
  Sender: FDA-Public Use
  Company Number: AU-AVENTIS-200613174EU

PATIENT
  Sex: Female

DRUGS (1)
  1. CLEXANE [Suspect]

REACTIONS (1)
  - MEDICAL DEVICE COMPLICATION [None]
